FAERS Safety Report 10076119 (Version 1)
Quarter: 2014Q2

REPORT INFORMATION
  Report Type: Spontaneous
  Country: DE (occurrence: DE)
  Receive Date: 20140414
  Receipt Date: 20140414
  Transmission Date: 20141212
  Serious: Yes (Other)
  Sender: FDA-Public Use
  Company Number: DE-ROXANE LABORATORIES, INC.-2014-RO-00568RO

PATIENT
  Age: 50 Year
  Sex: Female

DRUGS (4)
  1. PREDNISONE [Suspect]
     Indication: TEMPORAL ARTERITIS
     Route: 065
  2. METHOTREXATE [Suspect]
     Indication: TEMPORAL ARTERITIS
     Route: 065
  3. CYCLOPHOSPHAMIDE TABLETS USP [Suspect]
     Indication: TEMPORAL ARTERITIS
     Route: 065
  4. TOCILIZUMAB [Suspect]
     Indication: TEMPORAL ARTERITIS
     Route: 065

REACTIONS (4)
  - Spinal fracture [Unknown]
  - Pneumonitis [Unknown]
  - Drug intolerance [Unknown]
  - Hyperthyroidism [Recovered/Resolved]
